FAERS Safety Report 10348099 (Version 2)
Quarter: 2014Q3

REPORT INFORMATION
  Report Type: Spontaneous
  Country: GB (occurrence: BE)
  Receive Date: 20140729
  Receipt Date: 20140819
  Transmission Date: 20150326
  Serious: Yes (Other)
  Sender: FDA-Public Use
  Company Number: PHHY2014GB089738

PATIENT
  Age: 17 Year
  Sex: Female
  Weight: 62 kg

DRUGS (2)
  1. QUETIAPINE [Suspect]
     Active Substance: QUETIAPINE
     Dosage: 50 MG, IN THE EVENING
     Route: 048
     Dates: start: 20140508
  2. ABILIFY [Suspect]
     Active Substance: ARIPIPRAZOLE
     Indication: SOMNOLENCE
     Dosage: 10 MG, QMO
     Route: 048
     Dates: start: 201401, end: 20140518

REACTIONS (6)
  - Libido increased [Recovering/Resolving]
  - Sleep disorder [Recovering/Resolving]
  - Disinhibition [Recovering/Resolving]
  - Abnormal behaviour [Recovering/Resolving]
  - Autism [Recovering/Resolving]
  - Off label use [Unknown]

NARRATIVE: CASE EVENT DATE: 20140330
